FAERS Safety Report 24160975 (Version 3)
Quarter: 2024Q3

REPORT INFORMATION
  Report Type: Spontaneous
  Country: JP (occurrence: JP)
  Receive Date: 20240801
  Receipt Date: 20240902
  Transmission Date: 20241017
  Serious: Yes (Other)
  Sender: ADVANZ PHARMA
  Company Number: JP-SANOFI-AVENTIS R+D-2024SA212733

PATIENT

DRUGS (20)
  1. HYDROXYCHLOROQUINE [Suspect]
     Active Substance: HYDROXYCHLOROQUINE
     Indication: Systemic lupus erythematosus
     Dosage: UNK (PLAQUENIL FILM COATED TABLET)
     Route: 048
  2. ACTONEL [Concomitant]
     Active Substance: RISEDRONATE SODIUM
     Indication: Product used for unknown indication
     Dosage: INTAKE AT AWAKENING, 1 TABLET, QM
  3. ZOLPIDEM TARTRATE [Concomitant]
     Active Substance: ZOLPIDEM TARTRATE
     Indication: Product used for unknown indication
     Dosage: 2 TABLETS, QD, HS
  4. QUETIAPINE FUMARATE [Concomitant]
     Active Substance: QUETIAPINE FUMARATE
     Indication: Product used for unknown indication
     Dosage: MORNING: 0.5 TABLET, NOON: 0.5 TABLET, BEDTIME: 1 TABLET; 2 TABLETS IN 3 DIVIDED DOSES (AFTER BREAKF
  5. CALONAL [Concomitant]
     Active Substance: ACETAMINOPHEN
     Indication: Product used for unknown indication
     Dosage: 9 TABLETS IN 3 DIVIDED DOSES, PC
  6. IBUPROFEN [Concomitant]
     Active Substance: IBUPROFEN
     Indication: Product used for unknown indication
     Dosage: 1 TABLET, QD, AFTER SUPPER
  7. MONTELUKAST SODIUM [Concomitant]
     Active Substance: MONTELUKAST\MONTELUKAST SODIUM
     Indication: Product used for unknown indication
     Dosage: 1 TABLET, QD, HS
  8. CARBOCYSTEINE [Concomitant]
     Active Substance: CARBOCYSTEINE
     Indication: Product used for unknown indication
     Dosage: 6 TABLETS IN 3 DIVIDED DOSES, PC
  9. AMBROXOL HYDROCHLORIDE [Concomitant]
     Active Substance: AMBROXOL HYDROCHLORIDE
     Indication: Product used for unknown indication
     Dosage: 1 TABLET, QD, AFTER BREAKFAST
  10. PREGABALIN [Concomitant]
     Active Substance: PREGABALIN
     Indication: Product used for unknown indication
     Dosage: 2 TABLETS IN 2 DIVIDED DOSES, AFTER BREAKFAST AND SUPPER
  11. LAC B [BIFIDOBACTERIUM LACTIS] [Concomitant]
     Indication: Product used for unknown indication
     Dosage: 3 G IN 3 DIVIDED DOSES, PC
  12. ELOBIXIBAT [Concomitant]
     Active Substance: ELOBIXIBAT
     Indication: Product used for unknown indication
     Dosage: 3 TABLETS, QD, AFTER BREAKFAST
  13. FERRIC CITRATE ANHYDROUS [Concomitant]
     Active Substance: FERRIC CITRATE ANHYDROUS
     Indication: Product used for unknown indication
     Dosage: 2 TABLETS IN 2 DIVIDED DOSES, AFTER BREAKFAST AND SUPPER
  14. CINAL [ASCORBIC ACID;CALCIUM PANTOTHENATE] [Concomitant]
     Indication: Product used for unknown indication
     Dosage: 2 TABLETS IN 2 DIVIDED DOSES, AFTER BREAKFAST AND SUPPER
  15. SYMBICORT [Concomitant]
     Active Substance: BUDESONIDE\FORMOTEROL FUMARATE DIHYDRATE
     Indication: Product used for unknown indication
     Dosage: 1 KIT, BID, IN THE MORNING AND EVENING, 4 INHALATIONS/DOSE
  16. VONOPRAZAN FUMARATE [Concomitant]
     Active Substance: VONOPRAZAN FUMARATE
     Indication: Product used for unknown indication
     Dosage: 1 TABLET, QD, AFTER BREAKFAST
  17. PREDNISOLONE [Concomitant]
     Active Substance: PREDNISOLONE
     Indication: Product used for unknown indication
     Dosage: 3 TABLETS, QD, AFTER BREAKFAST
  18. PLAQUENIL [Concomitant]
     Active Substance: HYDROXYCHLOROQUINE SULFATE
     Indication: Product used for unknown indication
     Dosage: 1 TABLET, QD, AFTER BREAKFAST
  19. SULFAMETHOXAZOLE\TRIMETHOPRIM [Concomitant]
     Active Substance: SULFAMETHOXAZOLE\TRIMETHOPRIM
     Indication: Product used for unknown indication
     Dosage: 1 TABLET, QD, AFTER BREAKFAST
  20. TRAMCET [Concomitant]
     Active Substance: ACETAMINOPHEN\TRAMADOL
     Indication: Product used for unknown indication
     Dosage: 3 TABLETS IN 3 DIVIDED DOSES, PC

REACTIONS (5)
  - Vitreous detachment [Unknown]
  - Cataract [Unknown]
  - Retinal detachment [Unknown]
  - Astigmatism [Unknown]
  - Visual acuity reduced [Not Recovered/Not Resolved]

NARRATIVE: CASE EVENT DATE: 20240101
